FAERS Safety Report 10934152 (Version 4)
Quarter: 2015Q3

REPORT INFORMATION
  Report Type: Spontaneous
  Country: DE (occurrence: DE)
  Receive Date: 20150320
  Receipt Date: 20150702
  Transmission Date: 20151125
  Serious: Yes (Disabling, Other)
  Sender: FDA-Public Use
  Company Number: DE-BEH-2015049822

PATIENT
  Age: 65 Year
  Sex: Female
  Weight: 62 kg

DRUGS (9)
  1. EUTYROX 88 [Concomitant]
     Indication: HYPOTHYROIDISM
  2. PROLIA [Suspect]
     Active Substance: DENOSUMAB
     Dosage: ??-MAY-2015
  3. HIZENTRA [Suspect]
     Active Substance: HUMAN IMMUNOGLOBULIN G
     Indication: CHRONIC INFLAMMATORY DEMYELINATING POLYRADICULONEUROPATHY
     Dosage: START DATE: ??-AUG-2014 ONGOING; INFUSION TIME: 3HOURS
     Route: 058
  4. HIZENTRA [Suspect]
     Active Substance: HUMAN IMMUNOGLOBULIN G
     Indication: GUILLAIN-BARRE SYNDROME
     Dosage: START DATE: ??-AUG-2014 ONGOING; INFUSION TIME: 3HOURS
     Route: 058
  5. VIVAGLOBIN [Suspect]
     Active Substance: HUMAN IMMUNOGLOBULIN G
     Indication: CHRONIC INFLAMMATORY DEMYELINATING POLYRADICULONEUROPATHY
     Dosage: START DATE: ??-JAN-2010 TO ??-JUL-2014
     Route: 058
  6. PROLIA [Suspect]
     Active Substance: DENOSUMAB
     Indication: OSTEOPOROSIS
     Dosage: ??-MAY2014
  7. PROLIA [Suspect]
     Active Substance: DENOSUMAB
     Dosage: ??-NOV-2014
  8. VIVAGLOBIN [Suspect]
     Active Substance: HUMAN IMMUNOGLOBULIN G
     Indication: GUILLAIN-BARRE SYNDROME
     Dosage: START DATE: ??-JAN-2010 TO ??-JUL-2014
     Route: 058
  9. DECORTIN H [Concomitant]
     Active Substance: PREDNISOLONE
     Dosage: START DATE: SINCE 2007

REACTIONS (16)
  - Urethral disorder [Unknown]
  - Sjogren^s syndrome [Unknown]
  - Photophobia [Unknown]
  - Polyglandular disorder [Unknown]
  - Temperature intolerance [Unknown]
  - Eye pain [Unknown]
  - Sensation of foreign body [Unknown]
  - Bladder disorder [Unknown]
  - Eye irritation [Unknown]
  - Mucosal dryness [Unknown]
  - Vitamin D deficiency [Unknown]
  - Vocal cord disorder [Unknown]
  - Unevaluable event [Unknown]
  - Dysphonia [Unknown]
  - Mucous membrane disorder [Unknown]
  - Vocal cord paresis [Unknown]

NARRATIVE: CASE EVENT DATE: 201201
